FAERS Safety Report 23272613 (Version 1)
Quarter: 2023Q4

REPORT INFORMATION
  Report Type: Spontaneous
  Country: None (occurrence: US)
  Receive Date: 20231207
  Receipt Date: 20231207
  Transmission Date: 20240110
  Serious: No
  Sender: FDA-Public Use
  Company Number: US-Baxter Healthcare-2149094

PATIENT

DRUGS (2)
  1. DAPTOMYCIN IN SODIUM CHLORIDE [Suspect]
     Active Substance: DAPTOMYCIN
  2. DAPTOMYCIN [Suspect]
     Active Substance: DAPTOMYCIN

REACTIONS (1)
  - No adverse event [None]
